FAERS Safety Report 5684707-4 (Version None)
Quarter: 2008Q1

REPORT INFORMATION
  Report Type: 
  Country: None (occurrence: None)
  Receive Date: 20080328
  Receipt Date: 19820630
  Transmission Date: 20080703
  Serious: Yes (Death, Other)
  Sender: FDA-Public Use
  Company Number: US-ROCHE-671

PATIENT
  Age: 60 Year
  Sex: Female

DRUGS (6)
  1. NAPROSYN [Suspect]
     Route: 048
  2. GOLD NOS [Concomitant]
     Route: 048
  3. PENICILLAMINE [Concomitant]
     Route: 048
  4. ASPIRIN [Concomitant]
     Route: 048
  5. BUFFERIN [Concomitant]
     Route: 048
  6. NALFON [Concomitant]
     Route: 048

REACTIONS (9)
  - AMPUTATION [None]
  - DEATH [None]
  - ECCHYMOSIS [None]
  - GANGRENE [None]
  - PAIN [None]
  - PETECHIAE [None]
  - PYREXIA [None]
  - RADIAL NERVE PALSY [None]
  - VASCULITIS [None]
